FAERS Safety Report 16970889 (Version 3)
Quarter: 2019Q4

REPORT INFORMATION
  Report Type: Spontaneous
  Country: PL (occurrence: PL)
  Receive Date: 20191029
  Receipt Date: 20191112
  Transmission Date: 20200122
  Serious: Yes (Other)
  Sender: FDA-Public Use
  Company Number: PL-GALDERMA-PL19062355

PATIENT
  Age: 45 Year
  Sex: Male

DRUGS (8)
  1. DOXYCYCLINE. [Suspect]
     Active Substance: DOXYCYCLINE
     Indication: ATYPICAL MYCOBACTERIAL INFECTION
     Route: 065
  2. DOXYCYCLINE. [Suspect]
     Active Substance: DOXYCYCLINE
     Indication: GRANULOMA SKIN
  3. SULFAMETHOXAZOLE [Concomitant]
     Active Substance: SULFAMETHOXAZOLE
     Indication: GRANULOMA SKIN
  4. TRIMETHOPRIM. [Concomitant]
     Active Substance: TRIMETHOPRIM
     Indication: GRANULOMA SKIN
     Route: 065
  5. TRIMETHOPRIM. [Concomitant]
     Active Substance: TRIMETHOPRIM
     Indication: ATYPICAL MYCOBACTERIAL INFECTION
  6. SULODEXIDE [Concomitant]
     Active Substance: SULODEXIDE
     Indication: GRANULOMA SKIN
  7. SULFAMETHOXAZOLE [Concomitant]
     Active Substance: SULFAMETHOXAZOLE
     Indication: ATYPICAL MYCOBACTERIAL INFECTION
     Route: 065
  8. SULODEXIDE [Concomitant]
     Active Substance: SULODEXIDE
     Indication: ATYPICAL MYCOBACTERIAL INFECTION

REACTIONS (2)
  - Drug-induced liver injury [Unknown]
  - Product use in unapproved indication [Recovered/Resolved]
